FAERS Safety Report 15022096 (Version 1)
Quarter: 2018Q2

REPORT INFORMATION
  Report Type: Spontaneous
  Country: US (occurrence: US)
  Receive Date: 20180618
  Receipt Date: 20180618
  Transmission Date: 20180711
  Serious: No
  Sender: FDA-Public Use
  Company Number: US-SA-2018SA157262

PATIENT
  Age: 57 Year
  Sex: Male

DRUGS (17)
  1. OXYBUTYNIN. [Concomitant]
     Active Substance: OXYBUTYNIN CHLORIDE
  2. AUBAGIO [Suspect]
     Active Substance: TERIFLUNOMIDE
     Dosage: 1 DF, QD
  3. NUVIGIL [Concomitant]
     Active Substance: ARMODAFINIL
  4. CLINDAMYCIN. [Concomitant]
     Active Substance: CLINDAMYCIN
  5. CLOBETASOL PROPIONATE. [Concomitant]
     Active Substance: CLOBETASOL PROPIONATE
  6. ASMANEX [Concomitant]
     Active Substance: MOMETASONE FUROATE
  7. PREDNISONE. [Concomitant]
     Active Substance: PREDNISONE
  8. ESTRADIOL. [Concomitant]
     Active Substance: ESTRADIOL
  9. VITAMIN D [COLECALCIFEROL] [Concomitant]
  10. BUPROPION. [Concomitant]
     Active Substance: BUPROPION
  11. AZASITE [Concomitant]
     Active Substance: AZITHROMYCIN MONOHYDRATE
  12. ADDERALL [Concomitant]
     Active Substance: AMPHETAMINE ASPARTATE\AMPHETAMINE SULFATE\DEXTROAMPHETAMINE SACCHARATE\DEXTROAMPHETAMINE SULFATE
  13. ONDANSETRON [Concomitant]
     Active Substance: ONDANSETRON
  14. FLUOXETINE [Concomitant]
     Active Substance: FLUOXETINE HYDROCHLORIDE
  15. FLUTICASONE. [Concomitant]
     Active Substance: FLUTICASONE
  16. VENTOLIN [SALBUTAMOL] [Concomitant]
  17. BENZONATATE. [Concomitant]
     Active Substance: BENZONATATE

REACTIONS (1)
  - Abdominal pain upper [Not Recovered/Not Resolved]
